FAERS Safety Report 8558178-4 (Version None)
Quarter: 2012Q3

REPORT INFORMATION
  Report Type: 
  Country: None (occurrence: None)
  Receive Date: 20120801
  Receipt Date: 20120717
  Transmission Date: 20120928
  Serious: No
  Sender: FDA-Public Use
  Company Number: US-ASTRAZENECA-2012SE50984

PATIENT
  Age: 64 Year
  Sex: Female

DRUGS (7)
  1. NEXIUM [Concomitant]
     Route: 048
  2. ONDANSETRON HCL [Concomitant]
     Dosage: 8 MG, 1 TABLET THREE TIMES A DAY AS NEEDED
     Route: 048
  3. OXYCODONE HCL AND ACETAMINOPHEN [Concomitant]
     Dosage: 5MG/325MG, 1 TABLET BY MOUTH ONE TIME A DAY AS NEEDED
     Route: 048
  4. METOPROLOL SUCCINATE [Suspect]
     Route: 048
  5. LEVOTHYROXINE SODIUM [Concomitant]
     Route: 048
  6. PRAVASTATIN SODIUM [Concomitant]
     Route: 048
  7. TRAMADOL HYDROCHLORIDE AND ACETAMINOPHEN [Concomitant]
     Dosage: 37.5/325 MG, 1 TO 2 TABLET BY MOUTH EVERY 8 HOURS
     Route: 048

REACTIONS (3)
  - FATIGUE [None]
  - HEADACHE [None]
  - DRUG HYPERSENSITIVITY [None]
